FAERS Safety Report 16971827 (Version 1)
Quarter: 2019Q4

REPORT INFORMATION
  Report Type: Spontaneous
  Country: US (occurrence: US)
  Receive Date: 20190912
  Receipt Date: 20190912
  Transmission Date: 20200122
  Serious: Yes (Other)
  Sender: FDA-Public Use
  Company Number: None

PATIENT
  Age: 79 Year
  Sex: Male
  Weight: 99.79 kg

DRUGS (5)
  1. COLESTIPOL HYDROCHLORI1 GM [Suspect]
     Active Substance: COLESTIPOL HYDROCHLORIDE
     Indication: DIARRHOEA
     Dosage: ?          QUANTITY:4 DF DOSAGE FORM;?
     Route: 048
     Dates: start: 2016, end: 201907
  2. COREG [Concomitant]
     Active Substance: CARVEDILOL
  3. METFORMAN [Concomitant]
     Active Substance: METFORMIN HYDROCHLORIDE
  4. BABY ASPIRIN [Concomitant]
     Active Substance: ASPIRIN
  5. ATROVASTATIN [Concomitant]
     Active Substance: ATORVASTATIN CALCIUM

REACTIONS (2)
  - Renal disorder [None]
  - Product physical consistency issue [None]

NARRATIVE: CASE EVENT DATE: 20190701
